FAERS Safety Report 5954273-4 (Version None)
Quarter: 2008Q4

REPORT INFORMATION
  Report Type: 
  Country: None (occurrence: None)
  Receive Date: 20081113
  Receipt Date: 20081113
  Transmission Date: 20090506
  Serious: No
  Sender: FDA-Public Use
  Company Number: None

PATIENT
  Age: 26 Year
  Sex: Female
  Weight: 62.5964 kg

DRUGS (1)
  1. PROAIR HFA [Suspect]
     Indication: ASTHMA
     Dosage: 108 MCG, DELIVERS 90 MCG EVERY 4HRS AS NEED PO
     Route: 048
     Dates: start: 20080120, end: 20080220

REACTIONS (4)
  - CHEST DISCOMFORT [None]
  - COUGH [None]
  - PRODUCT QUALITY ISSUE [None]
  - RESPIRATORY TRACT IRRITATION [None]
